FAERS Safety Report 7532239-0 (Version None)
Quarter: 2011Q2

REPORT INFORMATION
  Report Type: 
  Country: None (occurrence: None)
  Receive Date: 20110608
  Receipt Date: 20110602
  Transmission Date: 20111010
  Serious: Yes (Other)
  Sender: FDA-Public Use
  Company Number: PHHY2011PT47895

PATIENT
  Age: 52 Year
  Sex: Female

DRUGS (2)
  1. NABUMETONE [Suspect]
     Dosage: 1 G, UNK
  2. NAPROXEN [Suspect]

REACTIONS (3)
  - DRUG ERUPTION [None]
  - PRURITUS [None]
  - BURNING SENSATION [None]
